FAERS Safety Report 9646385 (Version 1)
Quarter: 2013Q4

REPORT INFORMATION
  Report Type: Report from Study
  Country: JP (occurrence: JP)
  Receive Date: 20131025
  Receipt Date: 20131025
  Transmission Date: 20140711
  Serious: Yes (Hospitalization)
  Sender: FDA-Public Use
  Company Number: JP-009507513-1310JPN011919

PATIENT
  Age: 81 Year
  Sex: Female

DRUGS (2)
  1. REBETOL [Suspect]
     Dosage: 400 MG, BID
     Route: 048
     Dates: start: 20130713, end: 201310
  2. PEGINTRON [Suspect]
     Dosage: 1 MICROGRAM PER KILOGRAM, QW
     Route: 058
     Dates: start: 20130711, end: 201310

REACTIONS (1)
  - Arrhythmia [Unknown]
